FAERS Safety Report 6143946-9 (Version None)
Quarter: 2009Q2

REPORT INFORMATION
  Report Type: 
  Country: None (occurrence: None)
  Receive Date: 20090406
  Receipt Date: 20090402
  Transmission Date: 20091009
  Serious: Yes (Life-Threatening)
  Sender: FDA-Public Use
  Company Number: JP-JNJFOC-20090400943

PATIENT
  Sex: Male
  Weight: 52 kg

DRUGS (11)
  1. ITRIZOLE [Suspect]
     Indication: DRUG USE FOR UNKNOWN INDICATION
     Route: 041
  2. BAKTAR [Suspect]
     Indication: PNEUMOCYSTIS JIROVECI PNEUMONIA
     Route: 048
  3. SOLU-MEDROL [Concomitant]
     Indication: PNEUMOCYSTIS JIROVECI PNEUMONIA
     Route: 042
  4. KENKETSU GLOVENIN-I-NICHIYAKU [Concomitant]
     Route: 042
  5. CIPROXAN [Concomitant]
     Route: 042
  6. GASTER [Concomitant]
     Indication: PROPHYLAXIS
     Route: 048
  7. URSO 250 [Concomitant]
     Indication: CHRONIC GRAFT VERSUS HOST DISEASE
     Route: 048
  8. ALLEGRA [Concomitant]
     Indication: CHRONIC GRAFT VERSUS HOST DISEASE
     Route: 048
  9. PREDNISOLONE [Concomitant]
     Indication: CHRONIC GRAFT VERSUS HOST DISEASE
     Route: 048
  10. DIOVAN [Concomitant]
     Indication: HYPERTENSION
     Route: 048
  11. LOXONIN [Concomitant]
     Indication: ARTHRALGIA
     Route: 048

REACTIONS (1)
  - HYPERKALAEMIA [None]
